FAERS Safety Report 8211337-2 (Version None)
Quarter: 2012Q1

REPORT INFORMATION
  Report Type: 
  Country: None (occurrence: None)
  Receive Date: 20120315
  Receipt Date: 20120315
  Transmission Date: 20120608
  Serious: No
  Sender: FDA-Public Use
  Company Number: None

PATIENT
  Sex: Female

DRUGS (1)
  1. ARIPIPRAZOLE [Suspect]
     Indication: MENTAL DISORDER
     Dosage: 5MG
     Route: 048
     Dates: start: 20120118, end: 20120124

REACTIONS (1)
  - PALPITATIONS [None]
